FAERS Safety Report 5188001-X (Version None)
Quarter: 2006Q4

REPORT INFORMATION
  Report Type: 
  Country: None (occurrence: None)
  Receive Date: 20061221
  Receipt Date: 20061214
  Transmission Date: 20070319
  Serious: Yes (Hospitalization)
  Sender: FDA-Public Use
  Company Number: JP-JNJFOC-20061200572

PATIENT
  Sex: Female
  Weight: 55 kg

DRUGS (20)
  1. INFLIXIMAB [Suspect]
     Dosage: DOSE: 3, 6, OR 10 MG/KG
     Route: 042
  2. INFLIXIMAB [Suspect]
     Dosage: DOSE: 3, 6, OR 10 MG/KG
     Route: 042
  3. INFLIXIMAB [Suspect]
     Dosage: DOSE: 3, 6, OR 10 MG/KG
     Route: 042
  4. INFLIXIMAB [Suspect]
     Dosage: DOSE: 3, 6, OR 10 MG/KG
     Route: 042
  5. INFLIXIMAB [Suspect]
     Dosage: DOSE: 3, 6, OR 10 MG/KG
     Route: 042
  6. INFLIXIMAB [Suspect]
     Route: 042
  7. INFLIXIMAB [Suspect]
     Route: 042
  8. INFLIXIMAB [Suspect]
     Indication: RHEUMATOID ARTHRITIS
     Route: 042
  9. RHEUMATREX [Suspect]
     Route: 048
  10. RHEUMATREX [Suspect]
     Route: 048
  11. RHEUMATREX [Suspect]
     Indication: RHEUMATOID ARTHRITIS
     Route: 048
  12. AZULFIDINE EN-TABS [Concomitant]
     Indication: RHEUMATOID ARTHRITIS
     Route: 048
  13. LOXONIN [Concomitant]
     Indication: RHEUMATOID ARTHRITIS
     Dosage: START DATE: ^BEFORE 26-JUL-2005^
     Route: 048
  14. ISALON [Concomitant]
     Indication: GASTROINTESTINAL DISORDER THERAPY
     Dosage: START DATE: ^BEFORE 26-JUL-2005^
     Route: 048
  15. KETOPROFEN [Concomitant]
     Indication: GASTROINTESTINAL DISORDER THERAPY
     Dosage: START DATE: ^BEFORE 26-JUL-2005^; ROUTE: ^TO^; DAILY DOSE: ^ADEQUATE DOSE^
  16. FOLIAMIN [Concomitant]
     Indication: PROPHYLAXIS
     Dosage: START DATE: ^BEFORE 26-JUL-2005^
     Route: 048
  17. VOLTAREN [Concomitant]
     Indication: DYSMENORRHOEA
     Dosage: START DATE: ^BEFORE 08-NOV-2005^
     Route: 048
  18. ASVERIN [Concomitant]
     Indication: NASOPHARYNGITIS
  19. ISODINE [Concomitant]
     Indication: NASOPHARYNGITIS
  20. PL [Concomitant]
     Indication: NASOPHARYNGITIS

REACTIONS (1)
  - INTERSTITIAL LUNG DISEASE [None]
